FAERS Safety Report 25758566 (Version 1)
Quarter: 2025Q3

REPORT INFORMATION
  Report Type: Spontaneous
  Country: US (occurrence: US)
  Receive Date: 20250904
  Receipt Date: 20250904
  Transmission Date: 20251020
  Serious: No
  Sender: SANDOZ
  Company Number: US-SANDOZ-SDZ2025US061608

PATIENT
  Sex: Female

DRUGS (1)
  1. APREPITANT [Suspect]
     Active Substance: APREPITANT
     Indication: Product used for unknown indication
     Route: 065

REACTIONS (3)
  - Nausea [Unknown]
  - Vomiting [Unknown]
  - Product availability issue [Unknown]

NARRATIVE: CASE EVENT DATE: 20250801
